FAERS Safety Report 12320802 (Version 1)
Quarter: 2016Q2

REPORT INFORMATION
  Report Type: Spontaneous
  Country: US (occurrence: US)
  Receive Date: 20160429
  Receipt Date: 20160429
  Transmission Date: 20160815
  Serious: Yes (Other)
  Sender: FDA-Public Use
  Company Number: US-ROCHE-1642290

PATIENT
  Sex: Female

DRUGS (1)
  1. AVASTIN [Suspect]
     Active Substance: BEVACIZUMAB
     Indication: COLON CANCER STAGE IV
     Route: 042
     Dates: start: 201411, end: 201506

REACTIONS (3)
  - Dizziness [Recovered/Resolved]
  - Abscess [Recovered/Resolved]
  - Vomiting [Recovered/Resolved]
